FAERS Safety Report 7983634-7 (Version None)
Quarter: 2011Q4

REPORT INFORMATION
  Report Type: 
  Country: None (occurrence: None)
  Receive Date: 20111215
  Receipt Date: 20111202
  Transmission Date: 20120403
  Serious: Yes (Other)
  Sender: FDA-Public Use
  Company Number: PHHY2011ES104266

PATIENT
  Age: 57 Year
  Sex: Male

DRUGS (5)
  1. GLEEVEC [Suspect]
     Indication: CHRONIC MYELOID LEUKAEMIA
     Dosage: DAILY
     Route: 048
     Dates: start: 20050101
  2. GLEEVEC [Suspect]
     Dosage: 600 MG, DAILY
     Dates: start: 20060801
  3. GLEEVEC [Suspect]
     Dosage: 400 MG, DAILY
     Dates: start: 20060201
  4. GLEEVEC [Suspect]
     Dosage: 400 MG, DAILY
  5. GLEEVEC [Suspect]
     Dosage: 800 MG, DAILY
     Dates: start: 20080601

REACTIONS (2)
  - NEOPLASM MALIGNANT [None]
  - BLADDER TRANSITIONAL CELL CARCINOMA [None]
